FAERS Safety Report 4777898-0 (Version None)
Quarter: 2005Q3

REPORT INFORMATION
  Report Type: 
  Country: None (occurrence: None)
  Receive Date: 20050922
  Receipt Date: 20050804
  Transmission Date: 20060218
  Serious: Yes (Other)
  Sender: FDA-Public Use
  Company Number: USA-2005-0020952

PATIENT
  Sex: Female

DRUGS (2)
  1. OXYCONTIN [Suspect]
     Dosage: 560 MG, BID
     Dates: start: 19960101
  2. VALIUM [Concomitant]

REACTIONS (6)
  - DRUG WITHDRAWAL SYNDROME [None]
  - METASTASES TO BONE [None]
  - METASTASES TO LIVER [None]
  - PAIN [None]
  - UNEVALUABLE EVENT [None]
  - VOMITING [None]
